FAERS Safety Report 23250562 (Version 1)
Quarter: 2023Q4

REPORT INFORMATION
  Report Type: Spontaneous
  Country: CN (occurrence: None)
  Receive Date: 20231201
  Receipt Date: 20231201
  Transmission Date: 20240110
  Serious: Yes (Disabling, Other)
  Sender: FDA-Public Use
  Company Number: 2023A267137

PATIENT
  Age: 81 Year
  Sex: Female

DRUGS (9)
  1. GEFITINIB [Interacting]
     Active Substance: GEFITINIB
     Indication: Lung adenocarcinoma
     Route: 048
     Dates: start: 20200515, end: 20200930
  2. GEFITINIB [Interacting]
     Active Substance: GEFITINIB
     Indication: Lung adenocarcinoma
     Route: 048
  3. SIMVASTATIN [Interacting]
     Active Substance: SIMVASTATIN
  4. AMLODIPINE [Interacting]
     Active Substance: AMLODIPINE BESYLATE
  5. VALSARTAN [Concomitant]
     Active Substance: VALSARTAN
  6. EZETIMIBE [Concomitant]
     Active Substance: EZETIMIBE
  7. ASPIRIN [Concomitant]
     Active Substance: ASPIRIN
  8. ISOSORBIDE MONONITRATE [Concomitant]
     Active Substance: ISOSORBIDE MONONITRATE
  9. TRIMETAZIDINE DIHYDROCHLORIDE [Concomitant]
     Active Substance: TRIMETAZIDINE DIHYDROCHLORIDE

REACTIONS (3)
  - Drug interaction [Unknown]
  - Ototoxicity [Not Recovered/Not Resolved]
  - Deafness neurosensory [Not Recovered/Not Resolved]

NARRATIVE: CASE EVENT DATE: 20200930
